FAERS Safety Report 16656300 (Version 1)
Quarter: 2019Q3

REPORT INFORMATION
  Report Type: Spontaneous
  Country: US (occurrence: US)
  Receive Date: 20190801
  Receipt Date: 20190801
  Transmission Date: 20191004
  Serious: No
  Sender: FDA-Public Use
  Company Number: US-PACIRA-201500104

PATIENT
  Sex: Female

DRUGS (1)
  1. EXPAREL [Suspect]
     Active Substance: BUPIVACAINE
     Indication: ACCIDENTAL EXPOSURE TO PRODUCT
     Dosage: UNK UNK, UNK, FREQUENCY : UNK
     Route: 065

REACTIONS (3)
  - Product package associated injury [Unknown]
  - Product closure removal difficult [Unknown]
  - Product label issue [Unknown]
